FAERS Safety Report 18585157 (Version 1)
Quarter: 2020Q4

REPORT INFORMATION
  Report Type: Spontaneous
  Country: US (occurrence: US)
  Receive Date: 20201203
  Receipt Date: 20201203
  Transmission Date: 20210114
  Serious: Yes (Hospitalization)
  Sender: FDA-Public Use
  Company Number: None

PATIENT
  Age: 59 Year
  Sex: Female

DRUGS (20)
  1. SENNA LAXATIVE [Concomitant]
     Active Substance: SENNOSIDES
  2. ALBUTEROL HFA [Concomitant]
     Active Substance: ALBUTEROL SULFATE
  3. ASPIRIN. [Concomitant]
     Active Substance: ASPIRIN
  4. HUMULIN 70/30 [Concomitant]
     Active Substance: INSULIN HUMAN
  5. SILDENAFIL. [Concomitant]
     Active Substance: SILDENAFIL
  6. LOSARTAN. [Concomitant]
     Active Substance: LOSARTAN
  7. SPIRONOLACTONE. [Concomitant]
     Active Substance: SPIRONOLACTONE
  8. COLACE [Concomitant]
     Active Substance: DOCUSATE SODIUM
  9. CHANTIX [Concomitant]
     Active Substance: VARENICLINE TARTRATE
  10. GABAPENTIN. [Concomitant]
     Active Substance: GABAPENTIN
  11. CYCLOBENZAPRINE. [Concomitant]
     Active Substance: CYCLOBENZAPRINE
  12. OXYCODONE [Concomitant]
     Active Substance: OXYCODONE
  13. TRAMADOL. [Concomitant]
     Active Substance: TRAMADOL
  14. NALOXONE NASL SPRAY [Concomitant]
  15. OPSUMIT [Suspect]
     Active Substance: MACITENTAN
     Indication: PULMONARY HYPERTENSION
     Route: 048
     Dates: start: 201912
  16. BUMETANIDE. [Concomitant]
     Active Substance: BUMETANIDE
  17. ATORVASTATIN [Concomitant]
     Active Substance: ATORVASTATIN
  18. MELATONIN [Concomitant]
     Active Substance: MELATONIN
  19. TYVASO [Concomitant]
     Active Substance: TREPROSTINIL
  20. KWIKPEN [Concomitant]

REACTIONS (3)
  - Dyspnoea [None]
  - Therapy interrupted [None]
  - Tobacco user [None]

NARRATIVE: CASE EVENT DATE: 20201109
